FAERS Safety Report 6179724-4 (Version None)
Quarter: 2009Q2

REPORT INFORMATION
  Report Type: 
  Country: None (occurrence: None)
  Receive Date: 20090505
  Receipt Date: 20090428
  Transmission Date: 20091009
  Serious: Yes (Other)
  Sender: FDA-Public Use
  Company Number: US-ELI_LILLY_AND_COMPANY-US200904000244

PATIENT
  Sex: Male
  Weight: 120.41 kg

DRUGS (7)
  1. BYETTA [Suspect]
     Indication: TYPE 2 DIABETES MELLITUS
     Dosage: 5 UG, 2/D
     Route: 058
     Dates: start: 20070828, end: 20080319
  2. BYETTA [Suspect]
     Dosage: 10 UG, 2/D
     Route: 058
     Dates: start: 20080312, end: 20080404
  3. BENICAR [Concomitant]
     Indication: ESSENTIAL HYPERTENSION
     Dosage: UNK, DAILY (1/D)
     Route: 048
     Dates: start: 20070509
  4. SYNTHROID [Concomitant]
     Indication: HYPOTHYROIDISM
     Dosage: 175 UG, DAILY (1/D)
     Route: 048
     Dates: start: 20070509
  5. GLUCOPHAGE [Concomitant]
     Indication: DIABETES MELLITUS
     Dosage: 850 MG, 2/D
     Route: 048
     Dates: start: 20070509
  6. CIALIS [Concomitant]
     Indication: SEXUAL DYSFUNCTION
     Dosage: 20 MG, AS NEEDED
     Route: 048
     Dates: start: 20070828
  7. DEPO-TESTOSTERONE [Concomitant]
     Indication: HYPOGONADISM
     Dosage: 200 MG, OTHER
     Route: 030
     Dates: start: 20060915, end: 20080320

REACTIONS (2)
  - PANCREATITIS [None]
  - WEIGHT DECREASED [None]
